FAERS Safety Report 8200766-9 (Version None)
Quarter: 2012Q1

REPORT INFORMATION
  Report Type: 
  Country: None (occurrence: None)
  Receive Date: 20120312
  Receipt Date: 20120229
  Transmission Date: 20120608
  Serious: Yes (Hospitalization, Other)
  Sender: FDA-Public Use
  Company Number: FR-BRISTOL-MYERS SQUIBB COMPANY-16429532

PATIENT
  Age: 59 Year
  Sex: Female

DRUGS (8)
  1. FERROUS SULFATE TAB [Concomitant]
  2. YERVOY [Suspect]
     Dosage: 1 DF=5MG/ML,SOLUTION TO BE DILUTED FOR INFUSION
     Dates: start: 20110803, end: 20110901
  3. ATENOLOL [Concomitant]
  4. EUPRESSYL [Concomitant]
  5. NEXIUM [Concomitant]
  6. SIMVASTATIN [Concomitant]
  7. FOTEMUSTINE [Suspect]
     Dosage: SOLUTION TO BE DILUTED FOR PARENTERAL USE (INFUSION,09-DEC-2011 (DAY 8, COURSE PERFORMED).
     Route: 051
     Dates: start: 20111201
  8. PREDNISOLONE [Concomitant]

REACTIONS (4)
  - THROMBOCYTOPENIA [None]
  - PANCYTOPENIA [None]
  - RENAL FAILURE ACUTE [None]
  - GLOMERULONEPHRITIS [None]
